FAERS Safety Report 7954814-1 (Version None)
Quarter: 2011Q4

REPORT INFORMATION
  Report Type: 
  Country: None (occurrence: None)
  Receive Date: 20111202
  Receipt Date: 20111122
  Transmission Date: 20120403
  Serious: Yes (Death, Life-Threatening)
  Sender: FDA-Public Use
  Company Number: JP-ACTELION-A-CH2011-56145

PATIENT
  Sex: Male
  Weight: 53 kg

DRUGS (13)
  1. DIGOXIN [Concomitant]
  2. VALSARTAN [Concomitant]
  3. PREDNISOLONE [Concomitant]
  4. DIMEMORFAN PHOSPHATE [Concomitant]
  5. BERAPROST SODIUM [Concomitant]
  6. TOCOPHEROL ACETATE [Concomitant]
  7. MOSAPRIDE CITRATE [Concomitant]
  8. LANSOPRAZOLE [Concomitant]
  9. ZOLPIDEM TARTRATE [Concomitant]
  10. ASPIRIN [Concomitant]
  11. CLARITHROMYCIN [Concomitant]
  12. TRACLEER [Suspect]
     Indication: PULMONARY ARTERIAL HYPERTENSION
     Dosage: 62.5 MG, BID
     Route: 048
     Dates: start: 20090624, end: 20110105
  13. SARPOGRELATE HYDROCHLORIDE [Concomitant]

REACTIONS (8)
  - HEPATIC ENZYME ABNORMAL [None]
  - ALANINE AMINOTRANSFERASE INCREASED [None]
  - LUNG NEOPLASM MALIGNANT [None]
  - DYSPNOEA [None]
  - ASPARTATE AMINOTRANSFERASE INCREASED [None]
  - CONCOMITANT DISEASE AGGRAVATED [None]
  - PLEURAL EFFUSION [None]
  - CHEST PAIN [None]
